FAERS Safety Report 6257857-1 (Version None)
Quarter: 2009Q3

REPORT INFORMATION
  Report Type: 
  Country: None (occurrence: None)
  Receive Date: 20090707
  Receipt Date: 20090702
  Transmission Date: 20100115
  Serious: Yes (Hospitalization)
  Sender: FDA-Public Use
  Company Number: FR-RB-017423-09

PATIENT
  Age: 47 Year
  Sex: Male

DRUGS (5)
  1. SUBUTEX [Suspect]
     Route: 060
     Dates: start: 20090203, end: 20090224
  2. SUBUTEX [Suspect]
     Dosage: DOSING INFORMATION UNKNOWN.
     Route: 065
     Dates: start: 20090225
  3. OXAZEPAM [Concomitant]
     Indication: DRUG USE FOR UNKNOWN INDICATION
     Dosage: DOSING INFORMATION UNKNOWN
     Dates: start: 20080101
  4. DIAZEPAM [Concomitant]
     Indication: DRUG USE FOR UNKNOWN INDICATION
     Dosage: DOSING INFORMATION UNKNOWN
     Dates: start: 20080101
  5. AOTAL [Concomitant]
     Dosage: DOSING INFORMATION UNKNOWN
     Dates: start: 20080101

REACTIONS (1)
  - EPILEPSY [None]
